FAERS Safety Report 4526341-5 (Version None)
Quarter: 2004Q4

REPORT INFORMATION
  Report Type: 
  Country: None (occurrence: None)
  Receive Date: 20041210
  Receipt Date: 20041111
  Transmission Date: 20050328
  Serious: Yes (Hospitalization, Other)
  Sender: FDA-Public Use
  Company Number: 2004094064

PATIENT
  Age: 48 Year
  Sex: Female

DRUGS (2)
  1. BEXTRA [Suspect]
     Indication: SURGERY
     Dosage: (40 MG), ORAL
     Route: 048
     Dates: start: 20041109, end: 20041109
  2. CIPROFLOXACIN [Concomitant]

REACTIONS (1)
  - HYPERSENSITIVITY [None]
